FAERS Safety Report 18194607 (Version 3)
Quarter: 2025Q3

REPORT INFORMATION
  Report Type: Spontaneous
  Country: CA (occurrence: CA)
  Receive Date: 20200825
  Receipt Date: 20250818
  Transmission Date: 20251020
  Serious: Yes (Hospitalization, Other)
  Sender: ALEXION PHARMACEUTICALS
  Company Number: 2020SF06030

PATIENT
  Sex: Male

DRUGS (6)
  1. QUETIAPINE [Suspect]
     Active Substance: QUETIAPINE
     Indication: Product used for unknown indication
  2. ARIPIPRAZOLE [Suspect]
     Active Substance: ARIPIPRAZOLE
     Indication: Product used for unknown indication
     Route: 065
  3. CLOZARIL [Suspect]
     Active Substance: CLOZAPINE
     Indication: Product used for unknown indication
     Route: 065
  4. LUVOX [Suspect]
     Active Substance: FLUVOXAMINE MALEATE
     Indication: Product used for unknown indication
     Route: 065
  5. INVEGA [Suspect]
     Active Substance: PALIPERIDONE
     Indication: Product used for unknown indication
     Route: 065
  6. INVEGA [Suspect]
     Active Substance: PALIPERIDONE
     Route: 065

REACTIONS (12)
  - Suicidal ideation [Unknown]
  - Apathy [Unknown]
  - Autism spectrum disorder [Unknown]
  - Delirium [Recovered/Resolved]
  - Depression [Unknown]
  - Loss of libido [Unknown]
  - Persecutory delusion [Unknown]
  - Psychotic disorder [Unknown]
  - Schizophrenia [Unknown]
  - Social avoidant behaviour [Unknown]
  - Weight increased [Recovered/Resolved]
  - Drug ineffective [Unknown]
